FAERS Safety Report 8137298-2 (Version None)
Quarter: 2012Q1

REPORT INFORMATION
  Report Type: 
  Country: None (occurrence: None)
  Receive Date: 20120210
  Receipt Date: 20120130
  Transmission Date: 20120608
  Serious: Yes (Life-Threatening)
  Sender: FDA-Public Use
  Company Number: VISP-NO-1202S-0030

PATIENT
  Age: 70 Year
  Sex: Female

DRUGS (13)
  1. BISOPROLOL FUMARATE (CARDENSIEL) [Concomitant]
  2. CORDARONE [Concomitant]
  3. FENOFIBRATE [Concomitant]
  4. AMLODIPINE BESYLATE [Concomitant]
  5. CHONDOITIN SULFATE SODIUM (CHONDROSULF) [Concomitant]
  6. ZOLPIDEM [Concomitant]
  7. PANADEINE (EFFERALGAN CODEINE) (CODEINE PHOSPHATE) [Concomitant]
  8. ACETAMINOPHEN [Concomitant]
  9. PENTXIFYLLINE (PREVISCAN) (PENTOXIFYLLINE) [Concomitant]
  10. ESCITALOPRAM OXALATE (SEROPLEX) [Concomitant]
  11. VISIPAQUE [Suspect]
     Indication: SUBILEUS
     Dosage: 120 ML, SINGLE DOSE, INTRAVENOUS
     Route: 042
     Dates: start: 20120106, end: 20120106
  12. FOROSEMIDE (LASIX) (FUROSEMIDE) [Concomitant]
  13. CITALOPRAM HYDROBROMIDE [Concomitant]

REACTIONS (8)
  - HYPOXIA [None]
  - ATRIAL FIBRILLATION [None]
  - DYSPNOEA [None]
  - FALL [None]
  - SPINAL COLUMN INJURY [None]
  - ARRHYTHMIA [None]
  - RESPIRATORY DISTRESS [None]
  - RALES [None]
